FAERS Safety Report 24412544 (Version 1)
Quarter: 2024Q4

REPORT INFORMATION
  Report Type: Spontaneous
  Country: DE (occurrence: DE)
  Receive Date: 20241008
  Receipt Date: 20241008
  Transmission Date: 20250115
  Serious: Yes (Hospitalization)
  Sender: SANOFI AVENTIS
  Company Number: DE-SANOFI-02216624

PATIENT
  Age: 12 Year
  Sex: Male
  Weight: 42 kg

DRUGS (1)
  1. DUPIXENT [Suspect]
     Active Substance: DUPILUMAB
     Indication: Eosinophilic oesophagitis
     Dosage: 300 MG, QW
     Dates: start: 202408

REACTIONS (5)
  - Cough [Unknown]
  - Rash macular [Unknown]
  - Skin discolouration [Unknown]
  - Injection site induration [Unknown]
  - Injection site swelling [Unknown]

NARRATIVE: CASE EVENT DATE: 20240101
